FAERS Safety Report 20249262 (Version 2)
Quarter: 2022Q1

REPORT INFORMATION
  Report Type: Report from Study
  Country: US (occurrence: US)
  Receive Date: 20211229
  Receipt Date: 20220207
  Transmission Date: 20220423
  Serious: Yes (Death)
  Sender: FDA-Public Use
  Company Number: US-Taiho Oncology Inc-EU-2021-04030

PATIENT
  Age: 37 Year
  Sex: Female

DRUGS (9)
  1. LONSURF [Suspect]
     Active Substance: TIPIRACIL HYDROCHLORIDE\TRIFLURIDINE
     Indication: Metastasis
     Dosage: CYCLE 1
     Route: 048
     Dates: start: 20211115, end: 20211203
  2. APIXABAN [Concomitant]
     Active Substance: APIXABAN
  3. HYDROMORPHONE [Concomitant]
     Active Substance: HYDROMORPHONE
  4. LORAZEPAM [Concomitant]
     Active Substance: LORAZEPAM
  5. MESALAMINE [Concomitant]
     Active Substance: MESALAMINE
  6. MS CONTIN [Concomitant]
     Active Substance: MORPHINE SULFATE
  7. OMEPRAZOLE [Concomitant]
     Active Substance: OMEPRAZOLE
  8. ONDANSETRON [Concomitant]
     Active Substance: ONDANSETRON
  9. NALOXONE [Concomitant]
     Active Substance: NALOXONE

REACTIONS (1)
  - Disease progression [Fatal]

NARRATIVE: CASE EVENT DATE: 20210101
